FAERS Safety Report 19434667 (Version 1)
Quarter: 2021Q2

REPORT INFORMATION
  Report Type: Spontaneous
  Country: US (occurrence: US)
  Receive Date: 20210617
  Receipt Date: 20210617
  Transmission Date: 20210717
  Serious: No
  Sender: FDA-Public Use
  Company Number: US-ROCHE-2691112

PATIENT
  Age: 17 Year
  Sex: Female
  Weight: 59.02 kg

DRUGS (7)
  1. ACTEMRA [Suspect]
     Active Substance: TOCILIZUMAB
     Indication: RHEUMATOID ARTHRITIS
  2. PEPCID [Concomitant]
     Active Substance: FAMOTIDINE
  3. VITAMIN D3 [Concomitant]
     Active Substance: CHOLECALCIFEROL
     Route: 048
  4. ACTEMRA [Suspect]
     Active Substance: TOCILIZUMAB
  5. CALCIUM [Concomitant]
     Active Substance: CALCIUM
     Route: 048
  6. ACTEMRA [Suspect]
     Active Substance: TOCILIZUMAB
     Indication: JUVENILE IDIOPATHIC ARTHRITIS
     Dosage: 162 MG/0.9 ML
     Route: 058
     Dates: start: 20200701
  7. ACTEMRA [Suspect]
     Active Substance: TOCILIZUMAB

REACTIONS (6)
  - Injection site extravasation [Unknown]
  - Underdose [Unknown]
  - Off label use [Unknown]
  - Exposure via skin contact [Unknown]
  - Intentional product use issue [Unknown]
  - No adverse event [Unknown]

NARRATIVE: CASE EVENT DATE: 20200701
